FAERS Safety Report 20048276 (Version 2)
Quarter: 2021Q4

REPORT INFORMATION
  Report Type: Report from Study
  Country: DE (occurrence: DE)
  Receive Date: 20211109
  Receipt Date: 20211115
  Transmission Date: 20220303
  Serious: Yes (Life-Threatening)
  Sender: FDA-Public Use
  Company Number: DE-TEVA-2021-DE-1972273

PATIENT
  Age: 19 Year
  Sex: Female
  Weight: 56 kg

DRUGS (3)
  1. TRISENOX [Suspect]
     Active Substance: ARSENIC TRIOXIDE
     Indication: Acute promyelocytic leukaemia
     Dosage: DATE OF LAST ADMINISTRATION BEFORE ONSET OF SAE: 20-OCT-2021
     Route: 041
     Dates: start: 20211004, end: 20211020
  2. IDARUBICIN [Suspect]
     Active Substance: IDARUBICIN
     Indication: Acute promyelocytic leukaemia
     Dosage: DATE OF LAST ADMINISTRATION BEFORE ONSET OF SAE: 29-SEP-2021
     Route: 041
     Dates: start: 20210928, end: 20210929
  3. TRETINOIN [Suspect]
     Active Substance: TRETINOIN
     Indication: Acute promyelocytic leukaemia
     Dosage: DATE OF LAST ADMINISTRATION BEFORE ONSET OF SAE: 21-OCT-2021
     Route: 048
     Dates: start: 20210928, end: 20211021

REACTIONS (1)
  - Capillary leak syndrome [Recovering/Resolving]

NARRATIVE: CASE EVENT DATE: 20211021
